FAERS Safety Report 23105488 (Version 1)
Quarter: 2023Q4

REPORT INFORMATION
  Report Type: Spontaneous
  Country: US (occurrence: None)
  Receive Date: 20231023
  Receipt Date: 20231023
  Transmission Date: 20240109
  Serious: Yes (Hospitalization)
  Sender: FDA-Public Use
  Company Number: None

PATIENT
  Age: 74 Year
  Sex: Male

DRUGS (1)
  1. LISINOPRIL [Suspect]
     Active Substance: LISINOPRIL
     Dates: start: 20221024, end: 20230112

REACTIONS (4)
  - Atrial fibrillation [None]
  - Hyperkalaemia [None]
  - Palpitations [None]
  - Therapy cessation [None]

NARRATIVE: CASE EVENT DATE: 20230112
